FAERS Safety Report 7488652-3 (Version None)
Quarter: 2011Q2

REPORT INFORMATION
  Report Type: 
  Country: None (occurrence: None)
  Receive Date: 20110518
  Receipt Date: 20110511
  Transmission Date: 20111010
  Serious: Yes (Death, Hospitalization)
  Sender: FDA-Public Use
  Company Number: A0917260A

PATIENT
  Sex: Female

DRUGS (1)
  1. TYKERB [Suspect]
     Dosage: 1250MG PER DAY
     Route: 048
     Dates: start: 20101208, end: 20110414

REACTIONS (4)
  - DEATH [None]
  - DIARRHOEA [None]
  - DEHYDRATION [None]
  - BRAIN OEDEMA [None]
